FAERS Safety Report 10753576 (Version 1)
Quarter: 2015Q1

REPORT INFORMATION
  Report Type: Spontaneous
  Country: JP (occurrence: JP)
  Receive Date: 20150131
  Receipt Date: 20150131
  Transmission Date: 20150721
  Serious: Yes (Hospitalization)
  Sender: FDA-Public Use
  Company Number: PHHY2015JP009376

PATIENT
  Age: 62 Year
  Sex: Female

DRUGS (5)
  1. CISPLATIN. [Concomitant]
     Active Substance: CISPLATIN
     Indication: CERVIX CARCINOMA STAGE III
     Dosage: 63.5 MG/BODY
     Route: 065
  2. DEXAMETHASONE. [Suspect]
     Active Substance: DEXAMETHASONE
     Indication: CERVIX CARCINOMA STAGE III
     Dosage: 61.5 MG, (ON DAYS 1, 8 AND 15)
     Route: 065
  3. DEXAMETHASONE. [Suspect]
     Active Substance: DEXAMETHASONE
     Dosage: 13.2 MG, (ON DAY 2)
  4. PACLITAXEL. [Concomitant]
     Active Substance: PACLITAXEL
     Indication: CERVIX CARCINOMA STAGE III
     Dosage: 63.5 MG/BODY
     Route: 065
  5. MEROPENEM. [Concomitant]
     Active Substance: MEROPENEM
     Indication: KLEBSIELLA INFECTION
     Dosage: 1.5 G, QD
     Route: 065

REACTIONS (14)
  - Pyrexia [Recovering/Resolving]
  - Diarrhoea [Recovering/Resolving]
  - Pleural effusion [Recovering/Resolving]
  - Dyspnoea [Recovering/Resolving]
  - Strongyloidiasis [Recovering/Resolving]
  - Nausea [Recovering/Resolving]
  - Ileus [Recovering/Resolving]
  - Depressed level of consciousness [Recovering/Resolving]
  - Melaena [Recovering/Resolving]
  - Bronchiectasis [Recovering/Resolving]
  - Acute respiratory distress syndrome [Recovering/Resolving]
  - Bronchial haemorrhage [Recovering/Resolving]
  - Hypotension [Recovering/Resolving]
  - Vomiting [Recovering/Resolving]
